FAERS Safety Report 21274898 (Version 2)
Quarter: 2022Q3

REPORT INFORMATION
  Report Type: Spontaneous
  Country: US (occurrence: US)
  Receive Date: 20220831
  Receipt Date: 20220927
  Transmission Date: 20221027
  Serious: Yes (Other)
  Sender: FDA-Public Use
  Company Number: US-PFIZER INC-2020032876

PATIENT
  Age: 79 Year
  Sex: Female

DRUGS (2)
  1. XELJANZ XR [Suspect]
     Active Substance: TOFACITINIB CITRATE
     Indication: Rheumatoid arthritis
     Dosage: 11 MG, 1X/DAY
     Route: 048
     Dates: start: 20180101
  2. XELJANZ XR [Suspect]
     Active Substance: TOFACITINIB CITRATE
     Dosage: 11 MG, 1X/DAY
     Route: 048
     Dates: start: 201810

REACTIONS (6)
  - Knee operation [Unknown]
  - Staphylococcal infection [Unknown]
  - Post procedural infection [Unknown]
  - Grip strength decreased [Recovering/Resolving]
  - Condition aggravated [Unknown]
  - Food allergy [Unknown]

NARRATIVE: CASE EVENT DATE: 20211104
